FAERS Safety Report 6023208-0 (Version None)
Quarter: 2008Q4

REPORT INFORMATION
  Report Type: 
  Country: None (occurrence: None)
  Receive Date: 20081222
  Receipt Date: 20080926
  Transmission Date: 20090506
  Serious: No
  Sender: FDA-Public Use
  Company Number: ALL1-2008-02804

PATIENT
  Age: 9 Year
  Sex: Male
  Weight: 24 kg

DRUGS (4)
  1. VYVANSE [Suspect]
     Indication: ATTENTION DEFICIT/HYPERACTIVITY DISORDER
     Dosage: 50 MG, 1/XDAY:QD, ORAL : 60 MG, 1X/DAY:QD GIVEN AS TWO 30 MG CAPSULES, ORAL
     Route: 048
     Dates: start: 20070801, end: 20080601
  2. VYVANSE [Suspect]
     Indication: ATTENTION DEFICIT/HYPERACTIVITY DISORDER
     Dosage: 50 MG, 1/XDAY:QD, ORAL : 60 MG, 1X/DAY:QD GIVEN AS TWO 30 MG CAPSULES, ORAL
     Route: 048
     Dates: start: 20080601
  3. SINGULAIR (MONTELUKAST) CHEWABLE TABLET [Concomitant]
  4. CLARITIN (GLICLAZIDE) [Concomitant]

REACTIONS (4)
  - ABNORMAL BEHAVIOUR [None]
  - DISTURBANCE IN ATTENTION [None]
  - DRUG EFFECT DECREASED [None]
  - INAPPROPRIATE SCHEDULE OF DRUG ADMINISTRATION [None]
